FAERS Safety Report 5081528-0 (Version None)
Quarter: 2006Q3

REPORT INFORMATION
  Report Type: 
  Country: None (occurrence: None)
  Receive Date: 20060815
  Receipt Date: 20060815
  Transmission Date: 20061208
  Serious: Yes (Other)
  Sender: FDA-Public Use
  Company Number: None

PATIENT
  Sex: Male
  Weight: 223 kg

DRUGS (2)
  1. CITALOPRAM HYDROBROMIDE [Suspect]
     Indication: DEPRESSION
     Dosage: 40 MG 1 QD PO
     Route: 048
     Dates: start: 20060427
  2. CITALOPRAM HYDROBROMIDE [Suspect]
     Indication: PANIC DISORDER
     Dosage: 40 MG 1 QD PO
     Route: 048
     Dates: start: 20060427

REACTIONS (5)
  - ANXIETY [None]
  - HEADACHE [None]
  - HYPERHIDROSIS [None]
  - NERVOUSNESS [None]
  - PAIN [None]
